FAERS Safety Report 9978742 (Version 1)
Quarter: 2014Q1

REPORT INFORMATION
  Report Type: Report from Study
  Country: US (occurrence: US)
  Receive Date: 20140306
  Receipt Date: 20140306
  Transmission Date: 20141002
  Serious: No
  Sender: FDA-Public Use
  Company Number: US-ABBVIE-13P-163-1169873-00

PATIENT
  Age: 60 Year
  Sex: Female

DRUGS (11)
  1. HUMIRA [Suspect]
     Indication: CROHN^S DISEASE
     Dates: start: 20130903
  2. PENTASA [Concomitant]
     Indication: CROHN^S DISEASE
     Dosage: 2 PILLS
  3. DICYCLOMINE [Concomitant]
     Indication: CROHN^S DISEASE
  4. OMEPRAZOLE [Concomitant]
     Indication: GASTROOESOPHAGEAL REFLUX DISEASE
  5. PREMARIN [Concomitant]
     Indication: HORMONE REPLACEMENT THERAPY
     Dosage: 0.3 MG DAILY
  6. ESCITALOPRAM [Concomitant]
     Indication: PRODUCT USED FOR UNKNOWN INDICATION
     Dosage: 10 MG DAILY
  7. SPIRONOLACTONE [Concomitant]
     Indication: BLOOD TESTOSTERONE INCREASED
  8. CABERGOLINE [Concomitant]
     Indication: BLOOD TESTOSTERONE INCREASED
  9. CELEBREX [Concomitant]
     Indication: PAIN
     Dosage: 100 MG DAILY
  10. CYCLOBENZAPRINE [Concomitant]
     Indication: BACK PAIN
  11. RELPAX [Concomitant]
     Indication: MIGRAINE
     Dosage: MAY REPEAT

REACTIONS (8)
  - Cough [Not Recovered/Not Resolved]
  - Drug effect incomplete [Recovering/Resolving]
  - Diarrhoea [Recovering/Resolving]
  - Muscle spasms [Recovering/Resolving]
  - Nasopharyngitis [Not Recovered/Not Resolved]
  - Back pain [Recovering/Resolving]
  - Migraine [Recovering/Resolving]
  - Nausea [Recovered/Resolved]
